FAERS Safety Report 4921611-0 (Version None)
Quarter: 2006Q1

REPORT INFORMATION
  Report Type: 
  Country: None (occurrence: None)
  Receive Date: 20060224
  Receipt Date: 20060213
  Transmission Date: 20060701
  Serious: Yes (Hospitalization, Other)
  Sender: FDA-Public Use
  Company Number: 2006AC00292

PATIENT
  Age: 24 Year
  Sex: Male

DRUGS (9)
  1. LIDOCAINE [Suspect]
     Indication: LOCAL ANAESTHESIA
     Dosage: 2%, 1:100000 EPINEPHRINE
  2. VERSED [Concomitant]
  3. FENTANYL CITRATE [Concomitant]
  4. GLYCOPYRROLATE [Concomitant]
  5. LIDOCAINE [Concomitant]
  6. PROPOFOL [Concomitant]
     Indication: GENERAL ANAESTHESIA
     Dosage: 2 MG/KG
  7. MIVACURIUM [Concomitant]
     Indication: GENERAL ANAESTHESIA
     Dosage: 0.2 MG/KG
  8. SEVOFLURANE [Concomitant]
     Indication: MAINTENANCE OF ANAESTHESIA
  9. LABETALOL HCL [Concomitant]
     Indication: HYPERTENSION
     Dosage: 2 DOSES - TOTAL 15 MG

REACTIONS (11)
  - ASTHENIA [None]
  - BLOOD PRESSURE INCREASED [None]
  - DYSPHAGIA [None]
  - DYSPNOEA [None]
  - HEART RATE INCREASED [None]
  - MUSCLE DISORDER [None]
  - PALATAL DISORDER [None]
  - TONGUE DISORDER [None]
  - TONGUE PARALYSIS [None]
  - VOCAL CORD PARALYSIS [None]
  - WHEEZING [None]
